FAERS Safety Report 6261347-X (Version None)
Quarter: 2009Q3

REPORT INFORMATION
  Report Type: 
  Country: None (occurrence: None)
  Receive Date: 20090709
  Receipt Date: 20090701
  Transmission Date: 20100115
  Serious: Yes (Other)
  Sender: FDA-Public Use
  Company Number: PHEH2009US07033

PATIENT
  Sex: Male

DRUGS (2)
  1. TEGRETOL-XR [Suspect]
     Indication: CONVULSION
  2. LAMICTAL ^BURROUGHS WELLCOME^ [Concomitant]
     Dosage: 25 MG, UNK

REACTIONS (1)
  - RIB FRACTURE [None]
